FAERS Safety Report 15114125 (Version 1)
Quarter: 2018Q3

REPORT INFORMATION
  Report Type: Spontaneous
  Country: US (occurrence: US)
  Receive Date: 20180706
  Receipt Date: 20180706
  Transmission Date: 20181010
  Serious: No
  Sender: FDA-Public Use
  Company Number: US-TEVA-2018-US-920686

PATIENT
  Age: 42 Year
  Sex: Male

DRUGS (2)
  1. AUBAGIO [Suspect]
     Active Substance: TERIFLUNOMIDE
     Indication: MULTIPLE SCLEROSIS
     Route: 065
  2. ADDERALL [Suspect]
     Active Substance: AMPHETAMINE ASPARTATE\AMPHETAMINE SULFATE\DEXTROAMPHETAMINE SACCHARATE\DEXTROAMPHETAMINE SULFATE
     Dosage: DAILY
     Route: 048

REACTIONS (9)
  - Weight decreased [Unknown]
  - Gait disturbance [Unknown]
  - Balance disorder [Unknown]
  - Muscular weakness [Unknown]
  - Insomnia [Unknown]
  - Paraesthesia [Unknown]
  - Decreased appetite [Unknown]
  - Feeling abnormal [Unknown]
  - Hypoaesthesia [Unknown]
